FAERS Safety Report 5656116-5 (Version None)
Quarter: 2008Q1

REPORT INFORMATION
  Report Type: 
  Country: None (occurrence: None)
  Receive Date: 20080305
  Receipt Date: 20080220
  Transmission Date: 20080703
  Serious: Yes (Other)
  Sender: FDA-Public Use
  Company Number: S08-USA-00528-01

PATIENT
  Age: 57 Year
  Sex: Male

DRUGS (5)
  1. LEXAPRO [Suspect]
     Indication: DEPRESSION
     Dosage: 20 MG QAM PO
     Route: 048
     Dates: start: 20071101
  2. LEXAPRO [Suspect]
     Indication: OBSESSIVE-COMPULSIVE DISORDER
     Dosage: 20 MG QAM PO
     Route: 048
     Dates: start: 20071101
  3. KLONOPIN [Concomitant]
  4. TAGAMET [Concomitant]
  5. ANTIHISTAMINE (NOS) [Concomitant]

REACTIONS (2)
  - DRUG LEVEL INCREASED [None]
  - IMPAIRED DRIVING ABILITY [None]
